FAERS Safety Report 8102484-4 (Version None)
Quarter: 2012Q1

REPORT INFORMATION
  Report Type: 
  Country: None (occurrence: None)
  Receive Date: 20120201
  Receipt Date: 20120120
  Transmission Date: 20120608
  Serious: Yes (Hospitalization)
  Sender: FDA-Public Use
  Company Number: US-ELI_LILLY_AND_COMPANY-US201201007088

PATIENT
  Sex: Female

DRUGS (5)
  1. CYMBALTA [Suspect]
     Indication: DEPRESSION
     Dosage: 60 MG, QD
     Dates: start: 20110101
  2. CYMBALTA [Suspect]
     Dosage: UNK, UNKNOWN
  3. PROZAC [Suspect]
     Indication: DEPRESSION
     Dosage: 40 MG, QD
     Dates: start: 19900101
  4. LEVOTHYROXINE SODIUM [Concomitant]
  5. CYMBALTA [Suspect]
     Dosage: 60 MG, QD
     Dates: end: 20120117

REACTIONS (7)
  - FEELING ABNORMAL [None]
  - PANIC ATTACK [None]
  - BIPOLAR DISORDER [None]
  - DEPRESSION [None]
  - BLOOD PRESSURE INCREASED [None]
  - VISION BLURRED [None]
  - DRUG INEFFECTIVE [None]
